FAERS Safety Report 21610152 (Version 2)
Quarter: 2022Q4

REPORT INFORMATION
  Report Type: Spontaneous
  Country: US (occurrence: US)
  Receive Date: 20221117
  Receipt Date: 20221122
  Transmission Date: 20230112
  Serious: No
  Sender: FDA-Public Use
  Company Number: US-UNITED THERAPEUTICS-UNT-2022-027813

PATIENT
  Sex: Female
  Weight: 95.238 kg

DRUGS (5)
  1. REMODULIN [Suspect]
     Active Substance: TREPROSTINIL
     Indication: Pulmonary arterial hypertension
     Dosage: UNK UNK, CONTINUING
     Route: 058
     Dates: start: 20221021
  2. REMODULIN [Suspect]
     Active Substance: TREPROSTINIL
     Dosage: 0.011 ?G/KG, CONTINUING (SELF-FILL CASSETTE WITH 2.4 ML; RATE OF 27 MCL/HOUR)
     Route: 058
     Dates: start: 2022
  3. REMODULIN [Suspect]
     Active Substance: TREPROSTINIL
     Dosage: 0.018 ?G/KG, CONTINUING (SELF FILLED WITH 3 ML PER CASSETTE; PUMP RATE OF 44 MCL PER HOUR)
     Route: 058
     Dates: start: 2022
  4. OPSUMIT [Concomitant]
     Active Substance: MACITENTAN
     Indication: Product used for unknown indication
     Route: 065
  5. ADEMPAS [Concomitant]
     Active Substance: RIOCIGUAT
     Indication: Product used for unknown indication
     Route: 065

REACTIONS (7)
  - Migraine [Unknown]
  - Device failure [Unknown]
  - Device malfunction [Unknown]
  - Device power source issue [Recovered/Resolved]
  - Device failure [Unknown]
  - Device failure [Unknown]
  - Device use error [Unknown]

NARRATIVE: CASE EVENT DATE: 20220101
